FAERS Safety Report 6619113-9 (Version None)
Quarter: 2010Q1

REPORT INFORMATION
  Report Type: 
  Country: None (occurrence: None)
  Receive Date: 20100308
  Receipt Date: 20100302
  Transmission Date: 20100710
  Serious: Yes (Hospitalization, Other)
  Sender: FDA-Public Use
  Company Number: JP-ABBOTT-06P-087-0344006-00

PATIENT
  Sex: Female

DRUGS (5)
  1. EURODIN [Suspect]
     Indication: INSOMNIA
     Route: 048
     Dates: end: 20051122
  2. VEGETAMIN B [Suspect]
     Indication: INSOMNIA
     Route: 048
     Dates: start: 20051001, end: 20051122
  3. DEPAS [Concomitant]
     Indication: INSOMNIA
     Route: 048
  4. NITRAZEPAM [Concomitant]
     Indication: DRUG USE FOR UNKNOWN INDICATION
  5. BROTIZOLAM [Concomitant]
     Indication: DRUG USE FOR UNKNOWN INDICATION

REACTIONS (5)
  - AGRANULOCYTOSIS [None]
  - OROPHARYNGEAL PAIN [None]
  - PYREXIA [None]
  - RASH [None]
  - VIRAL INFECTION [None]
